FAERS Safety Report 13368011 (Version 1)
Quarter: 2017Q1

REPORT INFORMATION
  Report Type: Spontaneous
  Country: GB (occurrence: US)
  Receive Date: 20170324
  Receipt Date: 20170324
  Transmission Date: 20170429
  Serious: Yes (Life-Threatening, Hospitalization)
  Sender: FDA-Public Use
  Company Number: GB-SUN PHARMACEUTICAL INDUSTRIES LTD-2017RR-136029

PATIENT
  Age: 49 Year
  Sex: Female

DRUGS (20)
  1. CARBOPLATIN. [Suspect]
     Active Substance: CARBOPLATIN
     Indication: BREAST CANCER
     Dosage: 630 MG, CYCLICAL
     Route: 042
     Dates: start: 20150226, end: 20150226
  2. PERTUZUMAB [Suspect]
     Active Substance: PERTUZUMAB
     Dosage: 840 MG, CYCLICAL
     Route: 042
     Dates: start: 20141223, end: 20141223
  3. TRASTUZUMAB [Suspect]
     Active Substance: TRASTUZUMAB
     Indication: BREAST CANCER
     Dosage: CYCLICAL
     Route: 042
     Dates: start: 20150226, end: 20150226
  4. TAXOTERE [Suspect]
     Active Substance: DOCETAXEL
     Indication: BREAST CANCER
     Dosage: 137 MG, CYCLICAL
     Route: 042
     Dates: start: 20150226, end: 20150226
  5. TAXOTERE [Suspect]
     Active Substance: DOCETAXEL
     Dosage: 137 MG, CYCLICAL
     Route: 042
     Dates: start: 20141223, end: 20141223
  6. CLARITIN [Concomitant]
     Active Substance: LORATADINE
     Indication: PRODUCT USED FOR UNKNOWN INDICATION
     Dosage: UNK
     Route: 065
     Dates: start: 20151118, end: 20151218
  7. FAMOTIDINE. [Concomitant]
     Active Substance: FAMOTIDINE
     Indication: PREMEDICATION
     Dosage: UNK
     Route: 065
     Dates: start: 20141223
  8. NEULASTA [Concomitant]
     Active Substance: PEGFILGRASTIM
     Indication: PROPHYLAXIS
     Dosage: UNK
     Route: 065
     Dates: start: 20141226
  9. ZOFRAN [Concomitant]
     Active Substance: ONDANSETRON HYDROCHLORIDE
     Indication: PRODUCT USED FOR UNKNOWN INDICATION
     Dosage: UNK
     Route: 065
     Dates: start: 20141225
  10. CLARITIN [Concomitant]
     Active Substance: LORATADINE
     Dosage: UNK
     Route: 065
     Dates: start: 20150215, end: 20150217
  11. IBUPROFEN. [Concomitant]
     Active Substance: IBUPROFEN
     Indication: PRODUCT USED FOR UNKNOWN INDICATION
     Dosage: UNK
     Route: 065
  12. PERTUZUMAB [Suspect]
     Active Substance: PERTUZUMAB
     Indication: BREAST CANCER
     Dosage: CYCLICAL
     Route: 042
     Dates: start: 20150226, end: 20150226
  13. TYLENOL [Concomitant]
     Active Substance: ACETAMINOPHEN
     Indication: PREMEDICATION
     Dosage: UNK
     Route: 065
     Dates: start: 20141223
  14. PERTUZUMAB [Suspect]
     Active Substance: PERTUZUMAB
     Dosage: 420 MG, CYCLICAL
     Route: 042
     Dates: start: 20150113, end: 20150113
  15. TRASTUZUMAB [Suspect]
     Active Substance: TRASTUZUMAB
     Dosage: 597 MG, CYCLICAL
     Route: 042
     Dates: start: 20141223, end: 20141223
  16. CARBOPLATIN. [Suspect]
     Active Substance: CARBOPLATIN
     Dosage: 630 MG, CYCLICAL
     Route: 042
     Dates: start: 20141223, end: 20141223
  17. DIPHENHYDRAMINE HYDROCHLORIDE. [Concomitant]
     Active Substance: DIPHENHYDRAMINE HYDROCHLORIDE
     Indication: PREMEDICATION
     Dosage: UNK
     Route: 065
     Dates: start: 20141223
  18. TRASTUZUMAB [Suspect]
     Active Substance: TRASTUZUMAB
     Dosage: 447 MG, CYCLICAL
     Route: 042
     Dates: start: 20150113, end: 20150113
  19. DEXAMETHASONE. [Concomitant]
     Active Substance: DEXAMETHASONE
     Indication: PREMEDICATION
     Dosage: UNK
     Route: 065
     Dates: start: 20141223
  20. PALONOSETRON [Concomitant]
     Active Substance: PALONOSETRON
     Indication: PREMEDICATION
     Dosage: UNK
     Route: 065
     Dates: start: 20141223

REACTIONS (2)
  - Sepsis [Recovered/Resolved]
  - Febrile neutropenia [Recovered/Resolved with Sequelae]

NARRATIVE: CASE EVENT DATE: 20150306
